FAERS Safety Report 16046260 (Version 1)
Quarter: 2019Q1

REPORT INFORMATION
  Report Type: Spontaneous
  Country: US (occurrence: US)
  Receive Date: 20190307
  Receipt Date: 20190307
  Transmission Date: 20190418
  Serious: Yes (Hospitalization, Other)
  Sender: FDA-Public Use
  Company Number: US-BAYER-2019-043298

PATIENT
  Age: 28 Year
  Sex: Male
  Weight: 86.17 kg

DRUGS (5)
  1. ALEVE [Suspect]
     Active Substance: NAPROXEN SODIUM
     Indication: ANKYLOSING SPONDYLITIS
     Dosage: 500 MG, QD
     Route: 048
  2. PRILOSEC [Concomitant]
     Active Substance: OMEPRAZOLE MAGNESIUM
     Indication: DYSPEPSIA
     Dosage: UNK UNK, QD
  3. CELEBREX [Concomitant]
     Active Substance: CELECOXIB
     Indication: ANKYLOSING SPONDYLITIS
     Dosage: 400 MG, BID
     Route: 048
     Dates: start: 2010
  4. ZANTAC [Concomitant]
     Active Substance: RANITIDINE HYDROCHLORIDE
     Indication: GASTROOESOPHAGEAL REFLUX DISEASE
     Dosage: 450 MG, BID
  5. INDOMETHACIN [INDOMETACIN SODIUM] [Suspect]
     Active Substance: INDOMETHACIN SODIUM
     Indication: ANKYLOSING SPONDYLITIS
     Dosage: 50 MG, QD
     Route: 048

REACTIONS (6)
  - Labelled drug-drug interaction medication error [None]
  - Internal haemorrhage [Recovered/Resolved with Sequelae]
  - Gastritis [None]
  - Duodenal ulcer haemorrhage [None]
  - Gastric disorder [Recovering/Resolving]
  - Product use in unapproved indication [None]

NARRATIVE: CASE EVENT DATE: 2008
